FAERS Safety Report 4496474-0 (Version None)
Quarter: 2004Q4

REPORT INFORMATION
  Report Type: 
  Country: None (occurrence: None)
  Receive Date: 20041104
  Receipt Date: 20040923
  Transmission Date: 20050328
  Serious: Yes (Death, Life-Threatening, Hospitalization)
  Sender: FDA-Public Use
  Company Number: 234290

PATIENT
  Age: 48 Year
  Sex: Male
  Weight: 80 kg

DRUGS (18)
  1. NOVOSEVEN [Suspect]
     Indication: POST PROCEDURAL HAEMORRHAGE
     Dosage: SEE IMAGE
     Dates: start: 20031110, end: 20031110
  2. NOVOSEVEN [Suspect]
     Indication: POST PROCEDURAL HAEMORRHAGE
     Dosage: SEE IMAGE
     Dates: start: 20031110, end: 20031110
  3. NOVOSEVEN [Suspect]
     Indication: POST PROCEDURAL HAEMORRHAGE
     Dosage: SEE IMAGE
     Dates: start: 20031111, end: 20031111
  4. NOVOSEVEN [Suspect]
     Indication: POST PROCEDURAL HAEMORRHAGE
     Dosage: SEE IMAGE
     Dates: start: 20031111, end: 20031111
  5. NOVOSEVEN [Suspect]
     Indication: POST PROCEDURAL HAEMORRHAGE
     Dosage: SEE IMAGE
     Dates: start: 20031112, end: 20031112
  6. NOVOSEVEN [Suspect]
     Indication: POST PROCEDURAL HAEMORRHAGE
     Dosage: SEE IMAGE
     Dates: start: 20031112, end: 20031112
  7. NOVOSEVEN [Suspect]
     Indication: POST PROCEDURAL HAEMORRHAGE
     Dosage: SEE IMAGE
     Dates: start: 20031112, end: 20031112
  8. SILDENAFIL (SILDENAFIL) [Concomitant]
  9. SUFENTANIL CITRATE [Concomitant]
  10. MIDAZOLAM HCL [Concomitant]
  11. NORADRENALIN ^LECIVA^ (NOREPINEPHRINE) [Concomitant]
  12. DOBUTAMIN            (DOBUTAMINE HYDROCHLORIDE) [Concomitant]
  13. IMIPENEM (IMIPENEM) [Concomitant]
  14. METRONIDAZOLE [Concomitant]
  15. TOBRAMYCIN [Concomitant]
  16. SELENIDE SODIUM (SELENIDE SODIUM) [Concomitant]
  17. HYDROCORTISON             (HYDROCORTISONE) [Concomitant]
  18. ACETYLCYSTEINE [Concomitant]

REACTIONS (21)
  - ACQUIRED DIAPHRAGMATIC EVENTRATION [None]
  - ANURIA [None]
  - ARTERIAL HAEMORRHAGE [None]
  - BLADDER DISORDER [None]
  - BLOOD LACTIC ACID INCREASED [None]
  - CHOLECYSTITIS [None]
  - CONDITION AGGRAVATED [None]
  - CYANOSIS [None]
  - GALLBLADDER NECROSIS [None]
  - GASTROINTESTINAL NECROSIS [None]
  - HAEMODYNAMIC INSTABILITY [None]
  - HEPATIC NECROSIS [None]
  - INTESTINAL HAEMORRHAGE [None]
  - INTESTINAL ISCHAEMIA [None]
  - MESENTERIC VASCULAR INSUFFICIENCY [None]
  - NECROSIS ISCHAEMIC [None]
  - OXYGEN SATURATION DECREASED [None]
  - SEPSIS [None]
  - TACHYARRHYTHMIA [None]
  - THROMBOSIS [None]
  - THROMBOTIC MICROANGIOPATHY [None]
